FAERS Safety Report 8984054 (Version 2)
Quarter: 2013Q2

REPORT INFORMATION
  Report Type: Spontaneous
  Country: US (occurrence: None)
  Receive Date: 20120508
  Receipt Date: 20121107
  Transmission Date: 20140414
  Serious: Yes (Other)
  Sender: FDA-Public Use
  Company Number: 2012HGS-003323

PATIENT
  Age: 54 Year
  Sex: Female
  Weight: 50.8 kg

DRUGS (10)
  1. BENLYSTA [Suspect]
     Indication: SYSTEMIC LUPUS ERYTHEMATOSUS
     Dosage: 1 IN 28 D
     Route: 041
     Dates: start: 20120214
  2. METHOTREXATE (METHOTREXATE) (METHOTREXATE) [Concomitant]
  3. PLAQUENIL (HYDROXYCHLOROQUINE SULFATE) (HYDROXYCHLORQUINE SULFATE) [Concomitant]
  4. LEVOXYL (LEVOTHYROXINE SODIUM) (LEVOTHYROXINE SODIUM) [Concomitant]
  5. CYMBALTA (DULOXETINE HYDROCHLORIDE) (DULOXETINE HYDROCHLORIDE) [Concomitant]
  6. FOLIC ACID (FOLIC ACID) (FOLIC ACID) [Concomitant]
  7. RANITIDINE (RANITIDINE) (RANITIDINE) [Concomitant]
  8. BACLOFEN (BACLOFEN) (BACLOFEN) [Concomitant]
  9. TRAZODONE (TRAZODONE) (TRAZODONE) [Concomitant]
  10. FLUDROCORTISONE (FLUDROCORTISONE) (FLUDROCORTISONE) [Concomitant]

REACTIONS (3)
  - Fatigue [None]
  - Hypotension [None]
  - Nausea [None]
